FAERS Safety Report 5241719-2 (Version None)
Quarter: 2007Q1

REPORT INFORMATION
  Report Type: 
  Country: None (occurrence: None)
  Receive Date: 20070220
  Receipt Date: 20070212
  Transmission Date: 20070707
  Serious: Yes (Hospitalization)
  Sender: FDA-Public Use
  Company Number: FR-ELI_LILLY_AND_COMPANY-FR200702002458

PATIENT
  Age: 76 Year
  Sex: Female

DRUGS (4)
  1. FORTEO [Suspect]
     Indication: OSTEOPOROSIS
     Dosage: 20 UG, DAILY (1/D)
     Route: 058
     Dates: start: 20061031
  2. KARDEGIC [Concomitant]
     Dosage: 1 D/F, DAILY (1/D)
     Route: 048
  3. CYCLO 3 [Concomitant]
     Indication: VARICOSE VEIN
     Dosage: 1 D/F, 3/D
  4. FIXICAL D3 [Concomitant]
     Indication: OSTEOPOROSIS
     Dosage: 2 D/F, DAILY (1/D)
     Route: 048

REACTIONS (3)
  - BACK PAIN [None]
  - CHEST PAIN [None]
  - NECK PAIN [None]
